FAERS Safety Report 13076908 (Version 1)
Quarter: 2016Q4

REPORT INFORMATION
  Report Type: Spontaneous
  Country: GB (occurrence: GB)
  Receive Date: 20161230
  Receipt Date: 20161230
  Transmission Date: 20170207
  Serious: Yes (Congenital Anomaly)
  Sender: FDA-Public Use
  Company Number: GB-PFIZER INC-2016602001

PATIENT
  Sex: Male

DRUGS (4)
  1. HUMIRA [Suspect]
     Active Substance: ADALIMUMAB
     Route: 064
  2. ASPIRIN /00002701/ [Suspect]
     Active Substance: ASPIRIN
     Route: 064
  3. FRAGMIN [Suspect]
     Active Substance: DALTEPARIN SODIUM
     Route: 064
  4. PROGESTERONE. [Suspect]
     Active Substance: PROGESTERONE
     Route: 064

REACTIONS (3)
  - Maternal exposure timing unspecified [Unknown]
  - Disability [Unknown]
  - Foetal chromosome abnormality [Unknown]
